FAERS Safety Report 21709336 (Version 1)
Quarter: 2022Q4

REPORT INFORMATION
  Report Type: Spontaneous
  Country: NL (occurrence: NL)
  Receive Date: 20221210
  Receipt Date: 20221210
  Transmission Date: 20230113
  Serious: Yes (Hospitalization)
  Sender: FDA-Public Use
  Company Number: NL-002147023-NVSC2022NL285161

PATIENT
  Age: 72 Year
  Sex: Male

DRUGS (2)
  1. ROPINIROLE [Suspect]
     Active Substance: ROPINIROLE
     Indication: Restless legs syndrome
     Dosage: 12 MG, QD (INCREASED DOSE)
     Route: 065
  2. ROPINIROLE [Suspect]
     Active Substance: ROPINIROLE
     Dosage: 6 MG, QD (DOSE REDUCED)
     Route: 065

REACTIONS (4)
  - Suicidal ideation [Recovered/Resolved]
  - Insomnia [Recovered/Resolved]
  - Major depression [Recovering/Resolving]
  - Oedema peripheral [Recovering/Resolving]
